FAERS Safety Report 9885795 (Version 2)
Quarter: 2014Q1

REPORT INFORMATION
  Report Type: Report from Study
  Country: CA (occurrence: CA)
  Receive Date: 20140210
  Receipt Date: 20140219
  Transmission Date: 20141002
  Serious: Yes (Disabling, Other)
  Sender: FDA-Public Use
  Company Number: CA-BRISTOL-MYERS SQUIBB COMPANY-20108007

PATIENT
  Age: 71 Year
  Sex: Female

DRUGS (14)
  1. BLINDED: DAPAGLIFLOZIN [Suspect]
     Indication: TYPE 2 DIABETES MELLITUS
     Dosage: LAST DOSE:20DEC2013
     Dates: start: 20131025
  2. METFORMIN HCL [Suspect]
     Indication: TYPE 2 DIABETES MELLITUS
     Route: 048
  3. INSULIN GLARGINE [Suspect]
     Indication: TYPE 2 DIABETES MELLITUS
     Route: 058
  4. BLINDED: PLACEBO [Suspect]
     Indication: TYPE 2 DIABETES MELLITUS
     Dosage: RUN IN PHASE:18SEP2013TO24OCT2013.?BLINDED PHASE:25OCT2013
     Dates: start: 20131025
  5. ZOLOFT [Concomitant]
     Indication: DEPRESSION
     Route: 048
  6. DIOVAN HCT [Concomitant]
     Indication: HYPERTENSION
     Route: 048
  7. NORVASC [Concomitant]
     Indication: HYPERTENSION
     Route: 048
  8. ASPIRIN [Concomitant]
     Indication: PROPHYLAXIS
     Dosage: ENTERIC COATED ASPIRIN
     Route: 048
  9. TYLENOL ARTHRITIS [Concomitant]
     Indication: ARTHRALGIA
     Route: 048
  10. VITAMIN D [Concomitant]
     Indication: PROPHYLAXIS
     Route: 048
  11. CALCIUM [Concomitant]
     Indication: PROPHYLAXIS
     Route: 048
  12. TRAZODONE HCL [Concomitant]
     Indication: INSOMNIA
     Route: 048
  13. VITALUX [Concomitant]
  14. ZOCOR [Concomitant]
     Route: 048

REACTIONS (1)
  - Dysuria [Not Recovered/Not Resolved]
